FAERS Safety Report 10526793 (Version 1)
Quarter: 2014Q4

REPORT INFORMATION
  Report Type: Spontaneous
  Country: US (occurrence: US)
  Receive Date: 20141020
  Receipt Date: 20141020
  Transmission Date: 20150528
  Serious: Yes (Hospitalization)
  Sender: FDA-Public Use
  Company Number: US-009507513-1410USA007021

PATIENT
  Sex: Female

DRUGS (1)
  1. INVANZ [Suspect]
     Active Substance: ERTAPENEM SODIUM
     Indication: COLECTOMY
     Dosage: PATIENT WAS GIVEN ONE DOSE BEFORE SURGERY
     Route: 042

REACTIONS (1)
  - Clostridium difficile infection [Recovered/Resolved]
